FAERS Safety Report 6213818-X (Version None)
Quarter: 2009Q2

REPORT INFORMATION
  Report Type: 
  Country: None (occurrence: None)
  Receive Date: 20090602
  Receipt Date: 20090527
  Transmission Date: 20091009
  Serious: Yes (Death, Other)
  Sender: FDA-Public Use
  Company Number: 2009US001941

PATIENT
  Age: 44 Year
  Sex: Female

DRUGS (3)
  1. PROGRAF [Suspect]
     Indication: PROPHYLAXIS AGAINST GRAFT VERSUS HOST DISEASE
  2. METHOTREXATE [Suspect]
     Indication: PROPHYLAXIS AGAINST GRAFT VERSUS HOST DISEASE
  3. CYCLOPHOSPHAMIDE [Concomitant]

REACTIONS (10)
  - BLOOD CULTURE POSITIVE [None]
  - BRONCHOALVEOLAR LAVAGE ABNORMAL [None]
  - CARDIAC ARREST [None]
  - DIARRHOEA HAEMORRHAGIC [None]
  - DYSPNOEA [None]
  - ENTEROCOCCAL INFECTION [None]
  - HYPOTENSION [None]
  - KLEBSIELLA BACTERAEMIA [None]
  - LUNG INFILTRATION [None]
  - STRONGYLOIDIASIS [None]
